FAERS Safety Report 4515986-4 (Version None)
Quarter: 2004Q4

REPORT INFORMATION
  Report Type: 
  Country: None (occurrence: None)
  Receive Date: 20041201
  Receipt Date: 20041116
  Transmission Date: 20050328
  Serious: Yes (Hospitalization)
  Sender: FDA-Public Use
  Company Number: PANC00304003951

PATIENT
  Age: 16 Year
  Sex: Male

DRUGS (8)
  1. PANCREATIN TRIPLE STRENGTH CAP [Suspect]
     Indication: CYSTIC FIBROSIS PANCREATIC
     Dosage: 2 GRAM (S) TID ORAL
     Route: 048
     Dates: start: 20001114
  2. PANVITAN [Concomitant]
  3. HYMERON KI (PHYTOMENADIONE) [Concomitant]
  4. JUVELA (TOCOPHEROL) [Concomitant]
  5. BISOLVON (BROMHEXINE HYDROCHLORIDE) [Concomitant]
  6. MUCODYNE (CARBOCISTEINE) [Concomitant]
  7. ALFAROL (ALFACALCIDOL) [Concomitant]
  8. HOCHU-EKKI-TO [Concomitant]

REACTIONS (10)
  - ALANINE AMINOTRANSFERASE INCREASED [None]
  - ASPARTATE AMINOTRANSFERASE INCREASED [None]
  - BLOOD LACTATE DEHYDROGENASE INCREASED [None]
  - DIARRHOEA [None]
  - INSOMNIA [None]
  - LIVER FUNCTION TEST ABNORMAL [None]
  - PHARYNGOLARYNGEAL PAIN [None]
  - PNEUMONIA [None]
  - PRODUCTIVE COUGH [None]
  - VOMITING [None]
